FAERS Safety Report 22083119 (Version 1)
Quarter: 2023Q1

REPORT INFORMATION
  Report Type: Spontaneous
  Country: ES (occurrence: ES)
  Receive Date: 20230310
  Receipt Date: 20230310
  Transmission Date: 20230418
  Serious: Yes (Hospitalization)
  Sender: FDA-Public Use
  Company Number: None

PATIENT
  Age: 62 Year
  Sex: Male

DRUGS (4)
  1. QUETIAPINE [Interacting]
     Active Substance: QUETIAPINE
     Indication: Myoclonic epilepsy
     Dosage: (1136A)
     Route: 065
     Dates: start: 20230122, end: 20230123
  2. OLANZAPINE [Interacting]
     Active Substance: OLANZAPINE
     Indication: Myoclonic epilepsy
     Dosage: (2770A)
     Route: 065
     Dates: start: 20230122, end: 20230122
  3. CLOZAPINE [Interacting]
     Active Substance: CLOZAPINE
     Indication: Myoclonic epilepsy
     Dosage: (682A)
     Route: 065
     Dates: start: 20230122, end: 20230122
  4. HALOPERIDOL [Interacting]
     Active Substance: HALOPERIDOL
     Indication: Myoclonic epilepsy
     Dosage: (1693A)
     Route: 065
     Dates: start: 20230122, end: 20230122

REACTIONS (5)
  - Ileus paralytic [Recovered/Resolved]
  - Depressed level of consciousness [Recovered/Resolved]
  - Catatonia [Recovered/Resolved]
  - Myoclonic epilepsy [Recovered/Resolved]
  - Drug interaction [Unknown]

NARRATIVE: CASE EVENT DATE: 20230122
